FAERS Safety Report 6337575-1 (Version None)
Quarter: 2009Q3

REPORT INFORMATION
  Report Type: 
  Country: None (occurrence: None)
  Receive Date: 20090902
  Receipt Date: 20090820
  Transmission Date: 20100115
  Serious: Yes (Hospitalization, Other)
  Sender: FDA-Public Use
  Company Number: US-ELI_LILLY_AND_COMPANY-US200908004737

PATIENT
  Sex: Female

DRUGS (3)
  1. ZYPREXA [Suspect]
     Indication: BIPOLAR I DISORDER
     Dosage: 20 MG, EACH EVENING
  2. LITHIUM CARBONATE [Concomitant]
     Dosage: 450 MG, UNK
  3. SYNTHROID [Concomitant]
     Dosage: 100 UG, UNK

REACTIONS (1)
  - CATATONIA [None]
